FAERS Safety Report 23664443 (Version 2)
Quarter: 2024Q2

REPORT INFORMATION
  Report Type: Spontaneous
  Country: US (occurrence: US)
  Receive Date: 20240322
  Receipt Date: 20240509
  Transmission Date: 20240716
  Serious: No
  Sender: FDA-Public Use
  Company Number: US-LUPIN PHARMACEUTICALS INC.-2024-02389

PATIENT

DRUGS (1)
  1. TIOTROPIUM BROMIDE [Suspect]
     Active Substance: TIOTROPIUM BROMIDE
     Indication: Chronic obstructive pulmonary disease
     Dosage: UNK UNK, QD, 3-4 INHALATION A DAY
     Dates: start: 20240221

REACTIONS (4)
  - Device delivery system issue [Unknown]
  - Product preparation error [Unknown]
  - Device malfunction [Unknown]
  - No adverse event [Unknown]
